FAERS Safety Report 13113461 (Version 2)
Quarter: 2017Q2

REPORT INFORMATION
  Report Type: Spontaneous
  Country: JP (occurrence: JP)
  Receive Date: 20170113
  Receipt Date: 20170606
  Transmission Date: 20170830
  Serious: Yes (Death, Life-Threatening, Hospitalization, Other)
  Sender: FDA-Public Use
  Company Number: JP-PFIZER INC-2016561427

PATIENT
  Age: 82 Year
  Sex: Male

DRUGS (1)
  1. VFEND [Suspect]
     Active Substance: VORICONAZOLE
     Indication: ASPERGILLUS INFECTION
     Dosage: 150 MG, 2X/DAY
     Route: 048
     Dates: start: 20160531, end: 20161122

REACTIONS (4)
  - Blood beta-D-glucan increased [Recovering/Resolving]
  - Cranial nerve paralysis [Fatal]
  - Therapeutic response decreased [Not Recovered/Not Resolved]
  - Headache [Unknown]

NARRATIVE: CASE EVENT DATE: 20161019
